FAERS Safety Report 25443045 (Version 1)
Quarter: 2025Q2

REPORT INFORMATION
  Report Type: Spontaneous
  Country: CA (occurrence: CA)
  Receive Date: 20250617
  Receipt Date: 20250617
  Transmission Date: 20250716
  Serious: Yes (Hospitalization, Other)
  Sender: NOVO NORDISK
  Company Number: None

PATIENT
  Age: 54 Year
  Sex: Male
  Weight: 97 kg

DRUGS (3)
  1. INSULIN BEEF [Suspect]
     Active Substance: INSULIN BEEF
     Indication: Type 2 diabetes mellitus
     Route: 058
  2. JARDIANCE [Suspect]
     Active Substance: EMPAGLIFLOZIN
     Indication: Type 2 diabetes mellitus
     Route: 048
  3. PROPOFOL [Suspect]
     Active Substance: PROPOFOL
     Indication: Sedative therapy

REACTIONS (3)
  - Metabolic acidosis [Recovering/Resolving]
  - Respiratory acidosis [Recovering/Resolving]
  - Euglycaemic diabetic ketoacidosis [Recovering/Resolving]
